FAERS Safety Report 8836337 (Version 1)
Quarter: 2012Q4

REPORT INFORMATION
  Report Type: 
  Country: US (occurrence: US)
  Receive Date: 20121011
  Receipt Date: 20121011
  Transmission Date: 20130627
  Serious: Yes (Other)
  Sender: FDA-Public Use
  Company Number: US-PFIZER INC-2012247835

PATIENT
  Age: 62 Year
  Sex: Female
  Weight: 70.3 kg

DRUGS (1)
  1. DETROL LA [Suspect]
     Indication: HYPERTONIC BLADDER
     Dosage: 4 mg
     Dates: end: 201209

REACTIONS (2)
  - Glucose tolerance impaired [Unknown]
  - Intentional drug misuse [Unknown]
